FAERS Safety Report 19912421 (Version 1)
Quarter: 2021Q4

REPORT INFORMATION
  Report Type: Spontaneous
  Country: US (occurrence: US)
  Receive Date: 20211002
  Receipt Date: 20211002
  Transmission Date: 20220304
  Serious: Yes (Life-Threatening)
  Sender: FDA-Public Use
  Company Number: None

PATIENT
  Age: 14 Month
  Sex: Female

DRUGS (1)
  1. HOMEOPATHICS [Suspect]
     Active Substance: HOMEOPATHICS
     Indication: Product used for unknown indication
     Route: 048

REACTIONS (5)
  - Hepatic enzyme increased [None]
  - Lethargy [None]
  - Vomiting [None]
  - Diarrhoea [None]
  - Hepatic failure [None]

NARRATIVE: CASE EVENT DATE: 20210922
